FAERS Safety Report 7425914-X (Version None)
Quarter: 2011Q2

REPORT INFORMATION
  Report Type: 
  Country: None (occurrence: None)
  Receive Date: 20110420
  Receipt Date: 20110406
  Transmission Date: 20111010
  Serious: Yes (Other)
  Sender: FDA-Public Use
  Company Number: US-JNJFOC-20110403034

PATIENT
  Age: 68 Year
  Sex: Female
  Weight: 90.72 kg

DRUGS (1)
  1. LISTERINE TOTAL CARE ANTICAVITY MOUTHWASH [Suspect]
     Indication: DENTAL DISORDER PROPHYLAXIS
     Dosage: ^ABOUT A TABLESPOON^ ONCE
     Route: 048

REACTIONS (7)
  - DYSPNOEA [None]
  - PHARYNGEAL OEDEMA [None]
  - COUGH [None]
  - DYSPHONIA [None]
  - ACCIDENTAL EXPOSURE [None]
  - SPUTUM ABNORMAL [None]
  - OROPHARYNGEAL PAIN [None]
